FAERS Safety Report 7546005-3 (Version None)
Quarter: 2011Q2

REPORT INFORMATION
  Report Type: 
  Country: None (occurrence: None)
  Receive Date: 20110614
  Receipt Date: 20110601
  Transmission Date: 20111010
  Serious: Yes (Other)
  Sender: FDA-Public Use
  Company Number: PHHY2011US27640

PATIENT
  Sex: Female

DRUGS (15)
  1. VANCOMYCIN HCL [Concomitant]
     Dosage: 250 MG, QID
  2. ASPIRIN [Concomitant]
  3. LIPITOR [Concomitant]
     Dosage: 40 MG, QD
  4. IMDUR [Concomitant]
     Dosage: 30 MG, QD
  5. NOVOLOG [Concomitant]
     Indication: DIABETES MELLITUS
     Dosage: 25 U, QHS
  6. LANTUS [Concomitant]
     Indication: DIABETES MELLITUS
     Dosage: 25 U, QHS
  7. HYDRALAZINE HCL [Concomitant]
     Dosage: 25 MG, TID
  8. COREG [Concomitant]
     Dosage: 25 MG, BID
  9. INSULIN [Concomitant]
  10. ISOSORBIDE [Concomitant]
  11. LASIX [Concomitant]
     Dosage: 40 MG, QD
  12. PLAVIX [Concomitant]
     Dosage: 40 MG, QD
  13. TASIGNA [Suspect]
     Indication: CHRONIC MYELOID LEUKAEMIA
     Dosage: 200 MG, QOD
     Route: 048
  14. TASIGNA [Suspect]
     Dosage: 200 MG, QOD
     Route: 048
     Dates: start: 20100601
  15. BUSPIRONE HCL [Concomitant]
     Dosage: 20 MG, QHS

REACTIONS (5)
  - INFECTION [None]
  - MUSCLE SPASMS [None]
  - DYSPNOEA [None]
  - FAECES DISCOLOURED [None]
  - MALAISE [None]
